FAERS Safety Report 6203533-0 (Version None)
Quarter: 2009Q2

REPORT INFORMATION
  Report Type: 
  Country: None (occurrence: None)
  Receive Date: 20090527
  Receipt Date: 20090521
  Transmission Date: 20091009
  Serious: Yes (Death, Other)
  Sender: FDA-Public Use
  Company Number: PHBS2005NZ05716

PATIENT
  Sex: Male

DRUGS (5)
  1. CLOZARIL [Suspect]
     Indication: SCHIZOPHRENIA
     Dosage: 200 MG MANE AND 400 MG NOCTE
     Route: 048
     Dates: start: 20050207, end: 20050401
  2. CLOZARIL [Suspect]
     Dosage: 200 MG/D
     Route: 048
     Dates: start: 20050401
  3. CLOZARIL [Suspect]
     Dosage: 300 MG/D
     Route: 048
     Dates: start: 20060301
  4. DEXAMETHASONE 4MG TAB [Concomitant]
  5. SEROQUEL [Concomitant]
     Dosage: 600 MG/D
     Dates: start: 20050401

REACTIONS (9)
  - AGRANULOCYTOSIS [None]
  - ANTIPSYCHOTIC DRUG LEVEL INCREASED [None]
  - LETHARGY [None]
  - LYMPHOMA [None]
  - LYMPHOPENIA [None]
  - NEOPLASM MALIGNANT [None]
  - NEUTROPHIL COUNT DECREASED [None]
  - SCHIZOAFFECTIVE DISORDER [None]
  - WHITE BLOOD CELL COUNT DECREASED [None]
